FAERS Safety Report 4606947-5 (Version None)
Quarter: 2005Q1

REPORT INFORMATION
  Report Type: 
  Country: None (occurrence: None)
  Receive Date: 20050309
  Receipt Date: 20041123
  Transmission Date: 20050727
  Serious: Yes (Other)
  Sender: FDA-Public Use
  Company Number: 2004103744

PATIENT
  Age: 89 Year
  Sex: Female

DRUGS (2)
  1. CELEBREX [Suspect]
     Indication: ILL-DEFINED DISORDER
     Dosage: (100 MG)
  2. BEXTRA [Suspect]
     Indication: ILL-DEFINED DISORDER

REACTIONS (10)
  - ARTHRALGIA [None]
  - BLADDER DISORDER [None]
  - HAEMATURIA [None]
  - IMPAIRED SELF-CARE [None]
  - INADEQUATE ANALGESIA [None]
  - INFECTION [None]
  - PAIN [None]
  - RENAL DISORDER [None]
  - SKIN EXFOLIATION [None]
  - VAGINAL DISCHARGE [None]
